FAERS Safety Report 8949463 (Version 1)
Quarter: 2012Q4

REPORT INFORMATION
  Report Type: 
  Country: DE (occurrence: DE)
  Receive Date: 20121206
  Receipt Date: 20121206
  Transmission Date: 20130627
  Serious: Yes (Other)
  Sender: FDA-Public Use
  Company Number: DE-ABBOTT-12P-062-1016862-00

PATIENT
  Age: 64 Year
  Sex: Male

DRUGS (1)
  1. HYTRIN [Suspect]
     Indication: PRODUCT USED FOR UNKNOWN INDICATION
     Route: 048
     Dates: start: 20121126, end: 20121126

REACTIONS (3)
  - Heart rate irregular [Unknown]
  - Breast pain [Unknown]
  - Visual impairment [Unknown]
